FAERS Safety Report 5064350-0 (Version None)
Quarter: 2006Q3

REPORT INFORMATION
  Report Type: 
  Country: None (occurrence: None)
  Receive Date: 20060726
  Receipt Date: 20060724
  Transmission Date: 20061208
  Serious: Yes (Death)
  Sender: FDA-Public Use
  Company Number: 2103

PATIENT
  Age: 6 Year
  Sex: Male
  Weight: 28.5766 kg

DRUGS (4)
  1. LORATADINE, 10 MG TABLETS,  GENPHARM [Suspect]
     Dosage: 10 MG, 1 IN 1 D, PO
     Route: 048
  2. ALLERGY SHOTS [Concomitant]
  3. PIN WORM MEDICATION (OTC MEDICATION) [Concomitant]
  4. VITAMINS [Concomitant]

REACTIONS (2)
  - ARRHYTHMIA [None]
  - DRUG LEVEL INCREASED [None]
